FAERS Safety Report 6756424-0 (Version None)
Quarter: 2010Q2

REPORT INFORMATION
  Report Type: 
  Country: None (occurrence: None)
  Receive Date: 20100604
  Receipt Date: 20100525
  Transmission Date: 20101027
  Serious: Yes (Hospitalization)
  Sender: FDA-Public Use
  Company Number: A0838751A

PATIENT
  Sex: Female

DRUGS (6)
  1. PAROXETINE HCL [Suspect]
     Indication: DEPRESSION
     Dosage: 40MG PER DAY
     Route: 048
  2. PAXIL [Suspect]
     Indication: DEPRESSION
     Dosage: 40MG PER DAY
     Route: 048
  3. LORAZEPAM [Concomitant]
  4. HYDROCHLOROTHIAZIDE [Concomitant]
  5. MULTI-VITAMINS [Concomitant]
  6. TOPROL-XL [Concomitant]
     Dates: start: 20091201

REACTIONS (7)
  - ABNORMAL BEHAVIOUR [None]
  - DRUG DEPENDENCE [None]
  - DRUG INEFFECTIVE [None]
  - EMOTIONAL DISORDER [None]
  - EMOTIONAL DISTRESS [None]
  - HYPERTENSION [None]
  - MYOCARDIAL INFARCTION [None]
